FAERS Safety Report 5273276-9 (Version None)
Quarter: 2007Q1

REPORT INFORMATION
  Report Type: 
  Country: None (occurrence: None)
  Receive Date: 20070319
  Receipt Date: 20070301
  Transmission Date: 20070707
  Serious: Yes (Other)
  Sender: FDA-Public Use
  Company Number: PAR_1408_2007

PATIENT
  Age: 61 Year
  Sex: Female

DRUGS (5)
  1. IBUPROFEN [Suspect]
     Indication: NASOPHARYNGITIS
     Dosage: DF  PO
     Route: 048
  2. IBUPROFEN [Suspect]
     Indication: TOOTH INFECTION
     Dosage: DF  PO
     Route: 048
  3. ERYTHROCIN [Suspect]
     Indication: TOOTH INFECTION
     Dosage: DF PO
     Route: 048
  4. IBUPROFEN [Suspect]
     Indication: SKIN TEST
     Dosage: DF TD
  5. ERYTHROCIN [Suspect]
     Indication: SKIN TEST
     Dosage: DF TD

REACTIONS (9)
  - BLISTER [None]
  - DERMATITIS BULLOUS [None]
  - DRUG ERUPTION [None]
  - ERYTHEMA [None]
  - GLOSSODYNIA [None]
  - NASOPHARYNGITIS [None]
  - ORAL MUCOSAL DISORDER [None]
  - SKIN HYPERPIGMENTATION [None]
  - SKIN TEST POSITIVE [None]
